FAERS Safety Report 14284237 (Version 1)
Quarter: 2017Q4

REPORT INFORMATION
  Report Type: Report from Study
  Country: BR (occurrence: BR)
  Receive Date: 20171214
  Receipt Date: 20171214
  Transmission Date: 20180321
  Serious: Yes (Death, Hospitalization)
  Sender: FDA-Public Use
  Company Number: BR-UCBSA-2017039494

PATIENT
  Age: 87 Year
  Sex: Female

DRUGS (2)
  1. LEVETIRACETAM. [Suspect]
     Active Substance: LEVETIRACETAM
     Indication: EPILEPSY
     Dosage: 500 MG, 2X/DAY (BID)
     Route: 048
     Dates: start: 2016, end: 201706
  2. LAMITOR [Suspect]
     Active Substance: LAMOTRIGINE
     Indication: PRODUCT USED FOR UNKNOWN INDICATION
     Dosage: UNK
     Dates: end: 201709

REACTIONS (3)
  - Seizure [Recovered/Resolved]
  - Death [Fatal]
  - Blood sodium decreased [Recovered/Resolved]

NARRATIVE: CASE EVENT DATE: 201704
